FAERS Safety Report 6453807-3 (Version None)
Quarter: 2009Q4

REPORT INFORMATION
  Report Type: 
  Country: None (occurrence: None)
  Receive Date: 20091123
  Receipt Date: 20091123
  Transmission Date: 20100525
  Serious: Yes (Hospitalization)
  Sender: FDA-Public Use
  Company Number: None

PATIENT
  Age: 41 Year
  Sex: Female
  Weight: 120.2032 kg

DRUGS (1)
  1. VICKS INH [Suspect]
     Indication: NASAL CONGESTION
     Dosage: SPRAY IN NOSE EVERY 12 HOURS NASAL
     Route: 045
     Dates: start: 20091004, end: 20091119

REACTIONS (3)
  - ASTHMA [None]
  - BRONCHITIS [None]
  - PRODUCT CONTAMINATION MICROBIAL [None]
